FAERS Safety Report 7599404-8 (Version None)
Quarter: 2011Q3

REPORT INFORMATION
  Report Type: 
  Country: None (occurrence: None)
  Receive Date: 20110711
  Receipt Date: 20101019
  Transmission Date: 20111222
  Serious: Yes (Hospitalization)
  Sender: FDA-Public Use
  Company Number: US-BAYER-201026240NA

PATIENT
  Age: 29 Year
  Sex: Female
  Weight: 72.562 kg

DRUGS (8)
  1. VENLAFAXINE [Concomitant]
     Dosage: 37.5 MG, UNK
     Route: 048
  2. PENAZOPYRID [Concomitant]
     Dosage: 100 MG, UNK
     Route: 048
  3. YASMIN [Suspect]
     Indication: CONTRACEPTION
     Dosage: 1 DF, QD
     Dates: start: 20060101, end: 20080101
  4. ALPRAZOLAM [Concomitant]
     Dosage: 1 MG, UNK
     Route: 048
  5. CYCLOBENZAPRINE [Concomitant]
     Dosage: 10 MG, UNK
     Route: 048
  6. DROSPIRENONE AND ETHINYL ESTRADIOL [Suspect]
     Indication: CONTRACEPTION
     Dosage: 1 DF, QD
     Route: 048
     Dates: start: 20020101, end: 20040101
  7. YAZ [Suspect]
     Indication: CONTRACEPTION
     Dosage: 1 DF, QD
     Dates: start: 20040101, end: 20060101
  8. MELOXICAM [Concomitant]
     Dosage: 7.5 MG, UNK
     Route: 048

REACTIONS (6)
  - VOMITING [None]
  - CHOLECYSTITIS [None]
  - CHOLELITHIASIS [None]
  - BILIARY DYSKINESIA [None]
  - NAUSEA [None]
  - ABDOMINAL PAIN UPPER [None]
